FAERS Safety Report 17456403 (Version 3)
Quarter: 2020Q1

REPORT INFORMATION
  Report Type: Spontaneous
  Country: RO (occurrence: RO)
  Receive Date: 20200225
  Receipt Date: 20200329
  Transmission Date: 20200409
  Serious: Yes (Hospitalization, Other)
  Sender: FDA-Public Use
  Company Number: RO-AMGEN-ROUSP2020029655

PATIENT
  Age: 65 Year
  Sex: Female

DRUGS (1)
  1. ENBREL [Suspect]
     Active Substance: ETANERCEPT
     Indication: PSORIASIS
     Dosage: 2 VIALS, WEEKLY; 1 VIAL AT 3 DAYS
     Route: 065
     Dates: start: 202001, end: 20200211

REACTIONS (5)
  - Hepatitis toxic [Unknown]
  - Jaundice [Recovered/Resolved]
  - Bilirubin conjugated increased [Recovered/Resolved]
  - Transaminases increased [Recovered/Resolved]
  - Cholelithiasis [Recovered/Resolved]

NARRATIVE: CASE EVENT DATE: 20200211
